FAERS Safety Report 13887944 (Version 2)
Quarter: 2017Q4

REPORT INFORMATION
  Report Type: Spontaneous
  Country: US (occurrence: US)
  Receive Date: 20170821
  Receipt Date: 20171018
  Transmission Date: 20180320
  Serious: Yes (Hospitalization)
  Sender: FDA-Public Use
  Company Number: US-KERYX BIOPHARMACEUTICALS INC.-2017US003152

PATIENT

DRUGS (25)
  1. LORATADINE. [Concomitant]
     Active Substance: LORATADINE
     Dosage: 10 MG, QD
     Route: 048
  2. VALSARTAN. [Concomitant]
     Active Substance: VALSARTAN
     Dosage: 160 MG, BID
     Route: 048
     Dates: end: 20170806
  3. VALSARTAN. [Concomitant]
     Active Substance: VALSARTAN
     Dosage: 180 MG, BID
     Route: 048
     Dates: start: 20170807
  4. CLONAZEPAM. [Concomitant]
     Active Substance: CLONAZEPAM
     Indication: MYOCLONUS
     Dosage: 0.5 MG, Q8H
     Route: 048
  5. DOXAZOSIN [Concomitant]
     Active Substance: DOXAZOSIN\DOXAZOSIN MESYLATE
     Dosage: 4 MG, BID
     Route: 048
     Dates: start: 20170627
  6. GABAPENTIN. [Concomitant]
     Active Substance: GABAPENTIN
     Dosage: 200 MG, 3 TIMES/WK
     Route: 048
  7. AURYXIA [Suspect]
     Active Substance: TETRAFERRIC TRICITRATE DECAHYDRATE
     Indication: HYPERPHOSPHATAEMIA
     Dosage: 2 G (2 TABLETS), TID
     Route: 048
     Dates: start: 20170703
  8. AMLODIPINE [Concomitant]
     Active Substance: AMLODIPINE BESYLATE
     Dosage: 10 MG, QD
     Route: 048
     Dates: start: 20170627
  9. LIDOCAINE VISCOUS [Concomitant]
     Active Substance: LIDOCAINE HYDROCHLORIDE
     Indication: PAIN
     Dosage: 5 ML, PRN
     Route: 048
  10. ALBUTEROL HFA [Concomitant]
     Active Substance: ALBUTEROL SULFATE
     Dosage: 180 MICRO-G, Q4H PRN
     Route: 055
     Dates: start: 20130515
  11. GABAPENTIN. [Concomitant]
     Active Substance: GABAPENTIN
     Dosage: 300 MG, UNK
     Route: 048
  12. HYDROXYZINE [Concomitant]
     Active Substance: HYDROXYZINE HYDROCHLORIDE
     Indication: PRURITUS
     Dosage: 25 MG, QHS PRN
     Route: 048
  13. LISINOPRIL. [Concomitant]
     Active Substance: LISINOPRIL
     Dosage: 40 MG, BID
     Route: 048
  14. GABAPENTIN. [Concomitant]
     Active Substance: GABAPENTIN
     Dosage: 100 MG, 3 TIMES/WK
     Route: 048
  15. PANTOPRAZOLE [Concomitant]
     Active Substance: PANTOPRAZOLE
     Dosage: 40 MG, QD
     Route: 048
     Dates: start: 20150522
  16. ACETAMINOPHEN. [Concomitant]
     Active Substance: ACETAMINOPHEN
     Indication: PAIN
     Dosage: 650 MG EVERY 6 HOURS PRN
     Route: 048
     Dates: start: 20120529
  17. METOPROLOL TARTRATE. [Concomitant]
     Active Substance: METOPROLOL TARTRATE
     Dosage: 50 MG, BID
     Route: 048
     Dates: start: 20170705
  18. VITAMIN B COMPLEX WITH VITAMIN C + FOLIC ACID [Concomitant]
     Dosage: 1 DF, QHS
     Route: 048
     Dates: start: 20130515
  19. CLONIDINE. [Concomitant]
     Active Substance: CLONIDINE
     Dosage: 0.2 MG, TID
     Route: 048
  20. HYDROCODONE/ACETAMINOPHEN [Concomitant]
     Active Substance: ACETAMINOPHEN\HYDROCODONE
     Indication: PAIN
     Dosage: 1 DF, Q4H PRN
     Route: 048
  21. POLYETHYLENE GLYCOL [Concomitant]
     Active Substance: POLYETHYLENE GLYCOLS
     Dosage: 17 G, QD
     Route: 048
     Dates: start: 20170627
  22. SENNA                              /00571901/ [Concomitant]
     Active Substance: SENNOSIDES A AND B
     Dosage: 8.6 MG, QD
     Route: 048
     Dates: start: 20170627
  23. ALBUTEROL SULFATE. [Concomitant]
     Active Substance: ALBUTEROL SULFATE
     Indication: WHEEZING
     Dosage: 2.5 MG, Q6H PRN
     Route: 055
     Dates: start: 20161109
  24. ALPRAZOLAM. [Concomitant]
     Active Substance: ALPRAZOLAM
     Indication: ANXIETY
     Dosage: 0.25 MG, Q8H PRN
     Route: 048
     Dates: start: 20170628
  25. MINOXIDIL. [Concomitant]
     Active Substance: MINOXIDIL
     Dosage: 5 MG, BID
     Route: 048

REACTIONS (2)
  - Chest pain [Recovered/Resolved]
  - Myositis [Recovered/Resolved]

NARRATIVE: CASE EVENT DATE: 20170724
